FAERS Safety Report 9605906 (Version 3)
Quarter: 2013Q4

REPORT INFORMATION
  Report Type: Spontaneous
  Country: NO (occurrence: NO)
  Receive Date: 20131008
  Receipt Date: 20131105
  Transmission Date: 20140711
  Serious: Yes (Hospitalization)
  Sender: FDA-Public Use
  Company Number: NO-WATSON-2013-17855

PATIENT
  Age: 55 Year
  Sex: Male
  Weight: 91 kg

DRUGS (9)
  1. CIPROFLOXACIN HYDROCHLORIDE (UNKNOWN) [Suspect]
     Indication: BRONCHITIS
     Dosage: 500 MG, BID
     Route: 065
     Dates: start: 20121219, end: 20121228
  2. RITUXIMAB [Suspect]
     Indication: NON-HODGKIN^S LYMPHOMA
     Dosage: 1400 MG, ONCE EVERY 4 WEEKS
     Route: 058
     Dates: start: 20121121, end: 20121121
  3. RITUXIMAB [Suspect]
     Dosage: 1400 MG, ONCE EVERY 4 WEEKS
     Route: 058
     Dates: start: 20121024, end: 20121024
  4. RITUXIMAB [Suspect]
     Dosage: 1400 MG, ONCE EVERY 4 WEEKS
     Route: 058
     Dates: start: 20120926, end: 20120926
  5. RITUXIMAB [Suspect]
     Dosage: 780 MG, ONCE EVERY 4 WEEKS
     Route: 042
     Dates: start: 20120829, end: 20120829
  6. RITUXIMAB [Suspect]
     Dosage: 1400 MG,ONCE EVERY 4 WEEKS
     Route: 058
     Dates: start: 20130103, end: 20130103
  7. BENDAMUSTINE HYDROCHLORIDE [Suspect]
     Indication: NON-HODGKIN^S LYMPHOMA
     Dosage: 189 MG, DAY 1 AND DAY 2  EVERY 4 WEEKS
     Route: 042
     Dates: start: 20120829, end: 20130103
  8. AMOXICILLIN [Concomitant]
     Indication: BRONCHITIS
     Dosage: 1500 MG, UNKNOWN
     Route: 065
     Dates: start: 20121025, end: 20121103
  9. DOXYCYCLINE [Concomitant]
     Indication: BRONCHITIS
     Dosage: 100 MG, UNKNOWN
     Route: 065
     Dates: start: 20121121, end: 20121129

REACTIONS (1)
  - Febrile neutropenia [Recovered/Resolved]
